FAERS Safety Report 24523917 (Version 2)
Quarter: 2025Q1

REPORT INFORMATION
  Report Type: Spontaneous
  Country: AT (occurrence: AT)
  Receive Date: 20241018
  Receipt Date: 20250115
  Transmission Date: 20250409
  Serious: Yes (Other)
  Sender: PURDUE
  Company Number: AT-NAPPMUNDI-GBR-2024-0120469

PATIENT
  Age: 52 Year
  Sex: Female

DRUGS (2)
  1. MORPHINE SULFATE [Suspect]
     Active Substance: MORPHINE SULFATE
     Indication: Product used for unknown indication
     Route: 065
  2. MORPHINE SULFATE [Suspect]
     Active Substance: MORPHINE SULFATE
     Route: 065

REACTIONS (22)
  - Arrhythmia [Unknown]
  - Diarrhoea [Unknown]
  - Abnormal loss of weight [Unknown]
  - Eye colour change [Unknown]
  - Palpitations [Unknown]
  - Malaise [Unknown]
  - Flushing [Unknown]
  - Hyperhidrosis [Unknown]
  - Apathy [Unknown]
  - Sedation [Unknown]
  - Disorientation [Unknown]
  - Vertigo [Unknown]
  - Microsleep [Unknown]
  - Food craving [Unknown]
  - Drug ineffective [Unknown]
  - Wrong technique in product usage process [Unknown]
  - Inappropriate schedule of product administration [Unknown]
  - Product physical issue [Unknown]
  - Product label issue [Unknown]
  - Product size issue [Unknown]
  - Counterfeit product administered [Unknown]
  - Somnolence [Unknown]

NARRATIVE: CASE EVENT DATE: 20230801
